FAERS Safety Report 17890501 (Version 1)
Quarter: 2020Q2

REPORT INFORMATION
  Report Type: Report from Study
  Country: CN (occurrence: CN)
  Receive Date: 20200612
  Receipt Date: 20200612
  Transmission Date: 20200714
  Serious: Yes (Other)
  Sender: FDA-Public Use
  Company Number: CN-PFIZER INC-2020229468

PATIENT
  Sex: Female

DRUGS (3)
  1. METHOTREXATE. [Suspect]
     Active Substance: METHOTREXATE
     Dosage: A SECOND METHOTREXATE INJECTION
  2. METHOTREXATE. [Suspect]
     Active Substance: METHOTREXATE
     Indication: ECTOPIC PREGNANCY
     Dosage: 50 MG/M2 (DISSOLVED IN 5 ML OF SALINE WAS INJECTED INTO THE GESTATIONAL SAC)
  3. SODIUM CHLORIDE. [Concomitant]
     Active Substance: SODIUM CHLORIDE
     Dosage: 5 ML

REACTIONS (2)
  - Gingival ulceration [Recovered/Resolved]
  - Bone marrow failure [Recovered/Resolved]
